FAERS Safety Report 9307230 (Version 5)
Quarter: 2014Q3

REPORT INFORMATION
  Report Type: Report from Study
  Country: US (occurrence: US)
  Receive Date: 20130524
  Receipt Date: 20140915
  Transmission Date: 20150326
  Serious: Yes (Hospitalization, Other)
  Sender: FDA-Public Use
  Company Number: US-BIOGENIDEC-2013BI043359

PATIENT
  Age: 45 Year
  Sex: Male

DRUGS (14)
  1. TYSABRI [Suspect]
     Active Substance: NATALIZUMAB
     Indication: MULTIPLE SCLEROSIS
     Route: 042
     Dates: start: 20091119, end: 20130501
  2. AMITIZA [Concomitant]
     Active Substance: LUBIPROSTONE
  3. ZANTAC [Concomitant]
     Active Substance: RANITIDINE HYDROCHLORIDE
  4. REBIF [Concomitant]
     Active Substance: INTERFERON BETA-1A
     Indication: MULTIPLE SCLEROSIS
     Dates: start: 201310
  5. NEURONTIN [Concomitant]
     Active Substance: GABAPENTIN
  6. FLONASE [Concomitant]
     Active Substance: FLUTICASONE PROPIONATE
  7. POTASSIUM [Concomitant]
     Active Substance: POTASSIUM
  8. ABILIFY [Concomitant]
     Active Substance: ARIPIPRAZOLE
  9. COUMADIN [Concomitant]
     Active Substance: WARFARIN SODIUM
  10. VITAMIN D [Concomitant]
     Active Substance: CHOLECALCIFEROL
  11. CYMBALTA [Concomitant]
     Active Substance: DULOXETINE HYDROCHLORIDE
  12. MIRAPEX [Concomitant]
     Active Substance: PRAMIPEXOLE DIHYDROCHLORIDE
  13. LASIX [Concomitant]
     Active Substance: FUROSEMIDE
  14. PLAVIX [Concomitant]
     Active Substance: CLOPIDOGREL BISULFATE

REACTIONS (9)
  - Chest X-ray abnormal [Unknown]
  - Muscle spasticity [Unknown]
  - Progressive multifocal leukoencephalopathy [Not Recovered/Not Resolved]
  - Candida infection [Unknown]
  - Urosepsis [Unknown]
  - Immune reconstitution inflammatory syndrome [Recovered/Resolved]
  - Cellulitis [Unknown]
  - Deep vein thrombosis [Unknown]
  - Staphylococcal infection [Unknown]

NARRATIVE: CASE EVENT DATE: 201212
